FAERS Safety Report 7020981-X (Version None)
Quarter: 2010Q3

REPORT INFORMATION
  Report Type: 
  Country: None (occurrence: None)
  Receive Date: 20100929
  Receipt Date: 20100920
  Transmission Date: 20110219
  Serious: Yes (Other)
  Sender: FDA-Public Use
  Company Number: BR-PFIZER INC-2010103058

PATIENT
  Age: 41 Year
  Sex: Female
  Weight: 70 kg

DRUGS (7)
  1. CHAMPIX [Suspect]
     Indication: SMOKING CESSATION THERAPY
     Dosage: 0.5 MG, 1X/DAY (EVERY 24 HOURS)
     Route: 048
     Dates: start: 20100811
  2. DEFLAZACORT [Concomitant]
     Dosage: 30 MG, 1X/DAY
  3. MESTINON [Concomitant]
     Indication: MYASTHENIA GRAVIS
     Dosage: 600 MG, 5 TIMES PER DAY
  4. OSCAL 500-D [Concomitant]
     Dosage: 500 MG, 2X/DAY
  5. RANITIDINE [Concomitant]
     Indication: GASTRIC DISORDER
     Dosage: UNK
  6. SLOW-K [Concomitant]
     Dosage: 600 MG, 1X/DAY
  7. GLIOTEN [Concomitant]
     Indication: HYPERTENSION
     Dosage: UNK

REACTIONS (5)
  - BLOOD PRESSURE ABNORMAL [None]
  - BLOOD PRESSURE DECREASED [None]
  - LABYRINTHITIS [None]
  - MYASTHENIA GRAVIS [None]
  - TACHYCARDIA [None]
